FAERS Safety Report 20115998 (Version 1)
Quarter: 2021Q4

REPORT INFORMATION
  Report Type: Report from Study
  Country: AR (occurrence: AR)
  Receive Date: 20211126
  Receipt Date: 20211126
  Transmission Date: 20220303
  Serious: Yes (Other)
  Sender: FDA-Public Use
  Company Number: AR-NOVARTISPH-NVSC2020AR192816

PATIENT
  Sex: Female

DRUGS (1)
  1. COSENTYX [Suspect]
     Active Substance: SECUKINUMAB
     Indication: Psoriatic arthropathy
     Dosage: 300 MG, QMO
     Route: 058
     Dates: start: 20180606

REACTIONS (21)
  - Condition aggravated [Unknown]
  - Fracture [Unknown]
  - Limb discomfort [Unknown]
  - Arthralgia [Not Recovered/Not Resolved]
  - Joint swelling [Unknown]
  - Musculoskeletal stiffness [Unknown]
  - Joint contracture [Unknown]
  - Pain in extremity [Unknown]
  - Peripheral swelling [Unknown]
  - Psoriasis [Unknown]
  - Spinal pain [Unknown]
  - Groin pain [Not Recovered/Not Resolved]
  - Anaemia [Unknown]
  - Fall [Unknown]
  - Mood altered [Not Recovered/Not Resolved]
  - Gait disturbance [Unknown]
  - Tension [Unknown]
  - Balance disorder [Unknown]
  - Pain [Unknown]
  - Swelling [Unknown]
  - Muscle spasms [Unknown]

NARRATIVE: CASE EVENT DATE: 20200101
